FAERS Safety Report 8724352 (Version 2)
Quarter: 2013Q2

REPORT INFORMATION
  Report Type: Report from Study
  Country: JP (occurrence: JP)
  Receive Date: 20120815
  Receipt Date: 20130607
  Transmission Date: 20140414
  Serious: Yes (Other)
  Sender: FDA-Public Use
  Company Number: JP-009507513-1208JPN005251

PATIENT
  Age: 67 Year
  Sex: Male
  Weight: 68 kg

DRUGS (16)
  1. PEGINTRON [Suspect]
     Indication: HEPATITIS C
     Dosage: 1.5 MCG/KG/WEEK
     Route: 058
     Dates: start: 20120418, end: 20120418
  2. REBETOL [Suspect]
     Indication: HEPATITIS C
     Route: 048
     Dates: start: 20120418, end: 20120420
  3. TELAVIC [Suspect]
     Indication: HEPATITIS C
     Dosage: 2250 MG ONCE
     Route: 048
     Dates: start: 20120418, end: 20120420
  4. WARFARIN [Concomitant]
     Indication: ATRIAL FIBRILLATION
     Route: 048
     Dates: end: 20120420
  5. WARFARIN [Concomitant]
     Dosage: UNK
     Route: 048
     Dates: start: 20120422
  6. HALFDIGOXIN [Concomitant]
     Indication: CARDIAC FAILURE
     Dosage: 0.125 MG ONCE
     Route: 048
     Dates: end: 20120420
  7. HALFDIGOXIN [Concomitant]
     Dosage: UNK
     Route: 048
     Dates: start: 20120422
  8. CONIEL [Concomitant]
     Indication: HYPERTENSION
     Dosage: 40 MG, ONCE
     Route: 048
     Dates: end: 20120420
  9. CONIEL [Concomitant]
     Dosage: UNK
     Route: 048
     Dates: start: 20120422
  10. MAINTATE [Concomitant]
     Indication: HYPERTENSION
     Dosage: 5 MG, ONCE
     Route: 048
     Dates: end: 20120420
  11. MAINTATE [Concomitant]
     Dosage: UNK
     Route: 048
     Dates: start: 20120422
  12. PREMINENT [Concomitant]
     Indication: HYPERTENSION
     Dosage: 50 MG, ONCE
     Route: 048
     Dates: end: 20120420
  13. PREMINENT [Concomitant]
     Dosage: 12.5 MG, ONCE
     Route: 048
     Dates: end: 20120420
  14. PREMINENT [Concomitant]
     Dosage: UNK
     Route: 048
     Dates: start: 20120422
  15. LASIX (FUROSEMIDE) [Concomitant]
     Indication: CARDIAC FAILURE
     Route: 048
     Dates: end: 20120420
  16. LASIX (FUROSEMIDE) [Concomitant]
     Dosage: UNK
     Route: 048
     Dates: start: 20120422

REACTIONS (5)
  - Renal failure acute [Recovering/Resolving]
  - Haemoglobin decreased [Not Recovered/Not Resolved]
  - Pyrexia [Not Recovered/Not Resolved]
  - Blood pressure decreased [Recovering/Resolving]
  - Heart rate decreased [Recovering/Resolving]
